FAERS Safety Report 17148715 (Version 2)
Quarter: 2019Q4

REPORT INFORMATION
  Report Type: Spontaneous
  Country: JP (occurrence: JP)
  Receive Date: 20191213
  Receipt Date: 20191217
  Transmission Date: 20200122
  Serious: Yes (Hospitalization, Other)
  Sender: FDA-Public Use
  Company Number: JP-SA-2019SA342525

PATIENT
  Sex: Male

DRUGS (3)
  1. DUPIXENT [Suspect]
     Active Substance: DUPILUMAB
     Dosage: 300 MG (1 SYRINGE), Q3W OR Q4W
     Route: 058
  2. DUPIXENT [Suspect]
     Active Substance: DUPILUMAB
     Indication: DERMATITIS ATOPIC
     Dosage: 300 MG, QOW
     Route: 058
     Dates: start: 201902
  3. DUPIXENT [Suspect]
     Active Substance: DUPILUMAB
     Dosage: 300 MG (1 SYRINGE), ONCE
     Route: 058
     Dates: start: 20191206, end: 20191206

REACTIONS (17)
  - Hyperuricaemia [Unknown]
  - Malaise [Unknown]
  - Inappropriate schedule of product administration [Unknown]
  - Asthma [Unknown]
  - Chondrocalcinosis pyrophosphate [Unknown]
  - Blood uric acid increased [Unknown]
  - Conjunctivitis [Unknown]
  - Cellulitis [Unknown]
  - Cutaneous symptom [Unknown]
  - Gout [Unknown]
  - Cataract [Unknown]
  - Drug eruption [Unknown]
  - Cough [Unknown]
  - Unevaluable event [Unknown]
  - Product storage error [Unknown]
  - Gait inability [Unknown]
  - Herpes virus infection [Unknown]

NARRATIVE: CASE EVENT DATE: 201905
